FAERS Safety Report 16966567 (Version 2)
Quarter: 2019Q4

REPORT INFORMATION
  Report Type: Spontaneous
  Country: MX (occurrence: MX)
  Receive Date: 20191028
  Receipt Date: 20191030
  Transmission Date: 20200122
  Serious: Yes (Other)
  Sender: FDA-Public Use
  Company Number: MX-PFIZER INC-2017538150

PATIENT
  Age: 10 Year
  Sex: Male
  Weight: 59 kg

DRUGS (3)
  1. XYNTHA [Suspect]
     Active Substance: ANTIHEMOPHILIC FACTOR, HUMAN RECOMBINANT RESIDUES 743-1636 DELETED
     Indication: FACTOR VIII DEFICIENCY
     Dosage: 1000 IU, CYCLIC (EVERY 72 HOURS)
     Route: 042
  2. XYNTHA [Suspect]
     Active Substance: ANTIHEMOPHILIC FACTOR, HUMAN RECOMBINANT RESIDUES 743-1636 DELETED
     Dosage: 1250 IU, CYCLIC (EVERY 72 HOURS)
     Route: 042
  3. XYNTHA [Suspect]
     Active Substance: ANTIHEMOPHILIC FACTOR, HUMAN RECOMBINANT RESIDUES 743-1636 DELETED
     Dosage: 1250 IU, EVERY 72 HOURS
     Route: 042

REACTIONS (12)
  - Gait inability [Recovering/Resolving]
  - Gingival bleeding [Recovered/Resolved]
  - Gingival bleeding [Recovering/Resolving]
  - Fall [Recovering/Resolving]
  - Haemorrhage urinary tract [Recovering/Resolving]
  - Oedema [Unknown]
  - Haemarthrosis [Recovering/Resolving]
  - Oedema [Recovering/Resolving]
  - Joint injury [Unknown]
  - Erythema [Recovering/Resolving]
  - Abscess [Unknown]
  - Haematoma [Unknown]

NARRATIVE: CASE EVENT DATE: 20171214
